FAERS Safety Report 6079022-3 (Version None)
Quarter: 2009Q1

REPORT INFORMATION
  Report Type: 
  Country: None (occurrence: None)
  Receive Date: 20090216
  Receipt Date: 20090202
  Transmission Date: 20090719
  Serious: Yes (Hospitalization, Other)
  Sender: FDA-Public Use
  Company Number: US-ROCHE-612095

PATIENT
  Age: 56 Year
  Sex: Male

DRUGS (7)
  1. PEGASYS [Suspect]
     Indication: HEPATITIS C
     Route: 058
     Dates: start: 20081205
  2. PEGASYS [Suspect]
     Route: 058
     Dates: start: 20090106
  3. COPEGUS [Suspect]
     Indication: HEPATITIS C
     Dosage: TAKEN 400 MG IN MORNING AND 600 MG IN THE EVENING
     Route: 065
     Dates: start: 20081205
  4. NADOLOL [Concomitant]
     Dosage: DRUG: NADAOLOL
  5. AMBIEN [Concomitant]
     Dosage: DRUG : AMBIEN HS TAKEN AT BED TIME PRN
  6. TYLENOL [Concomitant]
  7. BENADRYL [Concomitant]
     Dosage: TAKEN PRIOR TO PEG-INTERFERON ALFA 2A EACH WEEK

REACTIONS (2)
  - FACIAL PALSY [None]
  - PLATELET COUNT DECREASED [None]
